FAERS Safety Report 24845596 (Version 2)
Quarter: 2025Q1

REPORT INFORMATION
  Report Type: Spontaneous
  Country: DE (occurrence: DE)
  Receive Date: 20250115
  Receipt Date: 20250221
  Transmission Date: 20250409
  Serious: Yes (Hospitalization, Other)
  Sender: TEVA
  Company Number: DE-TEVA-VS-3285730

PATIENT
  Age: 27 Year
  Sex: Female
  Weight: 66 kg

DRUGS (1)
  1. COPAXONE [Suspect]
     Active Substance: GLATIRAMER ACETATE
     Indication: Multiple sclerosis
     Route: 065
     Dates: start: 20240923

REACTIONS (6)
  - Uterine haemorrhage [Unknown]
  - Live birth [Unknown]
  - Maternal exposure during breast feeding [Unknown]
  - Maternal exposure during pregnancy [Unknown]
  - Foetal malposition [Unknown]
  - Gestational diabetes [Unknown]

NARRATIVE: CASE EVENT DATE: 20240101
